FAERS Safety Report 18445637 (Version 1)
Quarter: 2020Q4

REPORT INFORMATION
  Report Type: Spontaneous
  Country: US (occurrence: US)
  Receive Date: 20201030
  Receipt Date: 20201030
  Transmission Date: 20210114
  Serious: Yes (Life-Threatening, Hospitalization)
  Sender: FDA-Public Use
  Company Number: US-MYLANLABS-2020M1090602

PATIENT
  Age: 65 Year
  Sex: Male

DRUGS (2)
  1. TESTOSTERONE. [Suspect]
     Active Substance: TESTOSTERONE
     Indication: FATIGUE
     Dosage: WEEKLY TESTOSTERONE REPLACEMENT THERAPY
     Route: 065
  2. TESTOSTERONE. [Suspect]
     Active Substance: TESTOSTERONE
     Indication: ANDROGEN REPLACEMENT THERAPY

REACTIONS (5)
  - Diastolic dysfunction [Unknown]
  - Embolism venous [Unknown]
  - Right ventricular hypertrophy [Unknown]
  - Ventricular hypokinesia [Unknown]
  - Pulmonary embolism [Unknown]
